FAERS Safety Report 7979252-7 (Version None)
Quarter: 2011Q4

REPORT INFORMATION
  Report Type: 
  Country: None (occurrence: None)
  Receive Date: 20111214
  Receipt Date: 20111214
  Transmission Date: 20120403
  Serious: Yes (Death)
  Sender: FDA-Public Use
  Company Number: None

PATIENT
  Age: 80 Year
  Sex: Female
  Weight: 60 kg

DRUGS (12)
  1. SIMVASTATIN [Concomitant]
     Route: 048
  2. PRADAXA [Concomitant]
     Route: 048
  3. PRILOSEC [Concomitant]
     Route: 048
  4. BONIVA [Concomitant]
     Route: 048
  5. PRADAXA [Suspect]
     Indication: ATRIAL FIBRILLATION
     Dosage: 150 MG
     Route: 048
  6. AMIODARONE HYDROCHLORIDE [Concomitant]
     Route: 048
  7. ASPIRIN [Concomitant]
     Route: 048
  8. BACTROBAN [Concomitant]
     Route: 061
  9. ENALAPRIL MALEATE [Concomitant]
     Route: 048
  10. PREDNISONE TAB [Concomitant]
     Route: 048
  11. CALCIUM CARBONATE [Concomitant]
     Route: 048
  12. ZOVIRAX [Concomitant]
     Route: 061

REACTIONS (2)
  - FALL [None]
  - HAEMORRHAGE INTRACRANIAL [None]
